FAERS Safety Report 21594456 (Version 1)
Quarter: 2022Q4

REPORT INFORMATION
  Report Type: Other
  Country: US (occurrence: None)
  Receive Date: 20221115
  Receipt Date: 20221115
  Transmission Date: 20230113
  Serious: No
  Sender: FDA-Public Use
  Company Number: US-ROCHE-2966956

PATIENT
  Age: 41 Year
  Sex: Male

DRUGS (4)
  1. OSELTAMIVIR [Suspect]
     Active Substance: OSELTAMIVIR
     Indication: COVID-19
     Route: 065
  2. DECADRON [Concomitant]
     Active Substance: DEXAMETHASONE
  3. REMDESIVIR [Concomitant]
     Active Substance: REMDESIVIR
  4. HEPARIN [Concomitant]
     Active Substance: HEPARIN SODIUM
     Route: 041

REACTIONS (2)
  - Off label use [Unknown]
  - No adverse event [Unknown]
